FAERS Safety Report 4838056-4 (Version None)
Quarter: 2005Q4

REPORT INFORMATION
  Report Type: 
  Country: None (occurrence: None)
  Receive Date: 20051123
  Receipt Date: 20051123
  Transmission Date: 20060501
  Serious: No
  Sender: FDA-Public Use
  Company Number: None

PATIENT
  Age: 73 Year
  Sex: Female

DRUGS (17)
  1. KETEK [Suspect]
  2. ADVAIR DISKUS 100/50 [Concomitant]
  3. GUAIFENESIN [Concomitant]
  4. . [Concomitant]
  5. CETIRIZINE [Concomitant]
  6. IPRATROPRIUM NASAL SPRAY [Concomitant]
  7. MOMETASONE [Concomitant]
  8. ALBUTEROL [Concomitant]
  9. VALDECOXIB [Concomitant]
  10. GLUCOSAMINE/CHRONDROTIN [Concomitant]
  11. ATENOLOL [Concomitant]
  12. ASPIRIN [Concomitant]
  13. ESTROGEN, CONJUGATED [Concomitant]
  14. AMITRIPTYLINE HCL [Concomitant]
  15. ATORVASTATIN CALCIUM [Concomitant]
  16. CAPSAICIN CREAM [Concomitant]
  17. MULTI-VITAMIN [Concomitant]

REACTIONS (2)
  - HEPATIC FAILURE [None]
  - JAUNDICE [None]
